FAERS Safety Report 6649722-2 (Version None)
Quarter: 2010Q1

REPORT INFORMATION
  Report Type: 
  Country: None (occurrence: None)
  Receive Date: 20100324
  Receipt Date: 20100324
  Transmission Date: 20100710
  Serious: Yes (Life-Threatening, Hospitalization)
  Sender: FDA-Public Use
  Company Number: None

PATIENT
  Age: 26 Year
  Sex: Female
  Weight: 54.4316 kg

DRUGS (2)
  1. CIPRO [Suspect]
     Indication: URINARY TRACT INFECTION
     Dosage: 1 CAPSULE EVERY 4 HOURS PO
     Route: 048
     Dates: start: 20061214, end: 20061221
  2. MACROBID [Suspect]
     Indication: URINARY TRACT INFECTION
     Dosage: 1 CAPSULE EVERY 12 HOURS PO
     Route: 048
     Dates: start: 20061221, end: 20061223

REACTIONS (5)
  - BODY TEMPERATURE INCREASED [None]
  - COUGH [None]
  - DYSPNOEA [None]
  - ORTHOPNOEA [None]
  - PNEUMONIA [None]
